FAERS Safety Report 5331848-7 (Version None)
Quarter: 2007Q2

REPORT INFORMATION
  Report Type: 
  Country: None (occurrence: None)
  Receive Date: 20070306
  Receipt Date: 20051121
  Transmission Date: 20071010
  Serious: Yes (Hospitalization)
  Sender: FDA-Public Use
  Company Number: A03200503869

PATIENT
  Age: 60 Year
  Sex: Male

DRUGS (11)
  1. PLAVIX [Suspect]
     Dosage: 75 MG QD ORAL
     Route: 048
     Dates: start: 20030812, end: 20050901
  2. ACETYLSALICYLIC ACID SRT [Concomitant]
  3. LEVOTHYROXINE SODIUM [Concomitant]
  4. GARLIC [Concomitant]
  5. PAROXETINE HYDROCHLORIDE [Concomitant]
  6. FOLIC ACID+VITAMIN B6+VITAMINB12 [Concomitant]
  7. VARDENAFIL [Concomitant]
  8. VALACYCLOVIR HCL [Concomitant]
  9. ACYCLOVIR [Concomitant]
  10. RAMIPRIL [Concomitant]
  11. RABEPRAZOLE SODIUM [Concomitant]

REACTIONS (3)
  - CAROTID ARTERY STENOSIS [None]
  - GAIT DISTURBANCE [None]
  - TINNITUS [None]
